FAERS Safety Report 21374028 (Version 1)
Quarter: 2022Q3

REPORT INFORMATION
  Report Type: Spontaneous
  Country: US (occurrence: US)
  Receive Date: 20220926
  Receipt Date: 20220926
  Transmission Date: 20221027
  Serious: Yes (Hospitalization)
  Sender: FDA-Public Use
  Company Number: US-STRIDES ARCOLAB LIMITED-2022SP009406

PATIENT
  Age: 43 Year
  Sex: Male

DRUGS (12)
  1. PREDNISOLONE [Suspect]
     Active Substance: PREDNISOLONE
     Indication: Ulcer
     Dosage: 80 MILLIGRAM PER DAY
     Route: 048
  2. MORPHINE [Suspect]
     Active Substance: MORPHINE
     Indication: Complex regional pain syndrome
     Dosage: UNK, EVERY 3 HRS (15-30MG EVERY 3)
     Route: 048
  3. MORPHINE [Suspect]
     Active Substance: MORPHINE
     Dosage: UNK, EVERY 3 HRS (7.5-15 MG)
     Route: 048
  4. MORPHINE [Suspect]
     Active Substance: MORPHINE
     Dosage: UNK (REDUCED)
     Route: 048
  5. FENTANYL [Suspect]
     Active Substance: FENTANYL
     Indication: Complex regional pain syndrome
     Dosage: 50 MICROGRAM PER HOUR
     Route: 062
  6. CLONAZEPAM [Concomitant]
     Active Substance: CLONAZEPAM
     Indication: Complex regional pain syndrome
     Dosage: 1 MILLIGRAM, BID
     Route: 048
  7. CLONIDINE [Concomitant]
     Active Substance: CLONIDINE
     Indication: Complex regional pain syndrome
     Dosage: 0.4 MILLIGRAM, BID
     Route: 048
  8. GABAPENTIN [Concomitant]
     Active Substance: GABAPENTIN
     Indication: Complex regional pain syndrome
     Dosage: 1200 MILLIGRAM, TID
     Route: 048
  9. NABUMETONE [Concomitant]
     Active Substance: NABUMETONE
     Indication: Complex regional pain syndrome
     Dosage: 1000 MILLIGRAM, BID
     Route: 048
  10. ESCITALOPRAM [Concomitant]
     Active Substance: ESCITALOPRAM OXALATE
     Indication: Depression
     Dosage: 20 MILLIGRAM PER DAY
     Route: 048
  11. ESCITALOPRAM [Concomitant]
     Active Substance: ESCITALOPRAM OXALATE
     Indication: Anxiety
  12. TESTOSTERONE [Concomitant]
     Active Substance: TESTOSTERONE
     Indication: Hypogonadism
     Dosage: UNK (0.5 WEEK)

REACTIONS (2)
  - Drug ineffective [Unknown]
  - Off label use [Unknown]
